FAERS Safety Report 4886188-7 (Version None)
Quarter: 2006Q1

REPORT INFORMATION
  Report Type: 
  Country: None (occurrence: None)
  Receive Date: 20060117
  Receipt Date: 20060113
  Transmission Date: 20060701
  Serious: Yes (Hospitalization, Disabling)
  Sender: FDA-Public Use
  Company Number: URSO-2005-034

PATIENT
  Age: 27 Year
  Sex: Male

DRUGS (3)
  1. URSO (URSODESOXYCHOLIC ACID) [Suspect]
     Indication: CHOLANGITIS SCLEROSING
     Dosage: 600 MG,
     Route: 048
     Dates: start: 20011102, end: 20040105
  2. SODIUM FERROUS CITRATE (FERROMIA) [Suspect]
     Indication: IRON DEFICIENCY ANAEMIA
     Dosage: 100 MG,
     Dates: start: 20030203, end: 20040105
  3. ASCORBIC ACID (HICEE) [Suspect]
     Indication: IRON DEFICIENCY
     Dosage: 2G
     Dates: start: 20030203, end: 20040105

REACTIONS (4)
  - CHOLANGITIS SCLEROSING [None]
  - INTERSTITIAL LUNG DISEASE [None]
  - IRON DEFICIENCY ANAEMIA [None]
  - LIVER DISORDER [None]
